FAERS Safety Report 24208456 (Version 6)
Quarter: 2024Q4

REPORT INFORMATION
  Report Type: Report from Study
  Country: CN (occurrence: CN)
  Receive Date: 20240814
  Receipt Date: 20241226
  Transmission Date: 20250114
  Serious: Yes (Death, Other)
  Sender: JOHNSON AND JOHNSON
  Company Number: CN-JNJFOC-20220856073

PATIENT
  Age: 71 Year
  Sex: Male
  Weight: 73 kg

DRUGS (32)
  1. DARZALEX [Suspect]
     Active Substance: DARATUMUMAB
     Indication: Plasma cell myeloma
     Dosage: 400 MG
     Route: 042
     Dates: start: 20220713, end: 20220714
  2. DARZALEX [Suspect]
     Active Substance: DARATUMUMAB
     Dosage: 1150 MG
     Route: 042
     Dates: start: 20220721
  3. DARZALEX [Suspect]
     Active Substance: DARATUMUMAB
     Dosage: 800 MG
     Route: 042
     Dates: start: 20220730
  4. DARZALEX [Suspect]
     Active Substance: DARATUMUMAB
     Dosage: 400 MG
     Route: 042
     Dates: start: 20220714
  5. DARZALEX [Suspect]
     Active Substance: DARATUMUMAB
     Route: 042
     Dates: start: 20220713
  6. MONTELUKAST [Concomitant]
     Active Substance: MONTELUKAST SODIUM
     Indication: Obstructive airways disorder
     Route: 048
     Dates: start: 20220713, end: 20220714
  7. CHLORPHENIRAMINE [Concomitant]
     Active Substance: CHLORPHENIRAMINE
     Indication: Infusion related reaction
     Route: 048
     Dates: start: 20220713, end: 20220715
  8. ACETAMINOPHEN [Concomitant]
     Active Substance: ACETAMINOPHEN
     Indication: Infusion related reaction
     Route: 048
     Dates: start: 20220713, end: 20220715
  9. METHYLPREDNISOLONE [Concomitant]
     Active Substance: METHYLPREDNISOLONE
     Indication: Product used for unknown indication
     Route: 042
     Dates: start: 20220713, end: 20220714
  10. DEXAMETHASONE [Concomitant]
     Active Substance: DEXAMETHASONE
     Indication: Chills
     Route: 042
     Dates: start: 20220713, end: 20220713
  11. INSULIN NOS [Concomitant]
     Active Substance: INSULIN NOS
     Indication: Diabetes mellitus
     Route: 042
     Dates: start: 20220714, end: 20220714
  12. INSULIN NOS [Concomitant]
     Active Substance: INSULIN NOS
     Route: 042
     Dates: start: 20220809, end: 20220809
  13. SODIUM BICARBONATE [Concomitant]
     Active Substance: SODIUM BICARBONATE
     Indication: Micturition disorder
     Route: 042
     Dates: start: 20220714, end: 20220716
  14. ZOLEDRONIC ACID [Concomitant]
     Active Substance: ZOLEDRONIC ACID
     Indication: Bone pain
     Route: 042
     Dates: start: 20220721, end: 20220721
  15. GRANULOCYTE COLONY-STIMULATING FACTOR NOS [Concomitant]
     Active Substance: GRANULOCYTE COLONY-STIMULATING FACTOR NOS
     Indication: White blood cell count decreased
     Route: 042
     Dates: start: 20220728, end: 20220729
  16. PIPERACILLIN AND TAZOBACTAM [Concomitant]
     Active Substance: PIPERACILLIN SODIUM\TAZOBACTAM SODIUM
     Indication: Antiinflammatory therapy
     Route: 042
     Dates: start: 20220728, end: 20220728
  17. OMEPRAZOLE [Concomitant]
     Active Substance: OMEPRAZOLE
     Indication: Gastrointestinal disorder therapy
     Route: 042
     Dates: start: 20220730, end: 20220801
  18. VANCOMYCIN [Concomitant]
     Active Substance: VANCOMYCIN
     Indication: Antiinflammatory therapy
     Route: 042
     Dates: start: 20220731, end: 20220813
  19. VORICONAZOLE [Concomitant]
     Active Substance: VORICONAZOLE
     Indication: Antiinflammatory therapy
     Route: 042
     Dates: start: 20220803, end: 20220803
  20. PHENETHYLAMINE [Concomitant]
     Active Substance: PHENETHYLAMINE
     Indication: Haemorrhage prophylaxis
     Route: 065
  21. ETIMICIN SULFATE [Concomitant]
     Active Substance: ETIMICIN SULFATE
     Indication: Antiinflammatory therapy
     Route: 042
     Dates: start: 20220807, end: 20220810
  22. SODIUM CHLORIDE [Concomitant]
     Active Substance: SODIUM CHLORIDE
     Indication: Hyponatraemia
     Route: 042
     Dates: start: 20220808, end: 20220810
  23. DAPTOMYCIN [Concomitant]
     Active Substance: DAPTOMYCIN
     Indication: Antiinflammatory therapy
     Route: 042
     Dates: start: 20220809, end: 20220812
  24. ENOXAPARIN [Concomitant]
     Active Substance: ENOXAPARIN
     Indication: Anticoagulant therapy
     Route: 058
     Dates: start: 20220809, end: 20220810
  25. POTASSIUM CHLORIDE [Concomitant]
     Active Substance: POTASSIUM CHLORIDE
     Indication: Mineral supplementation
     Route: 042
     Dates: start: 20220810, end: 20220813
  26. GANCICLOVIR [Concomitant]
     Active Substance: GANCICLOVIR
     Indication: Antiviral prophylaxis
     Route: 042
     Dates: start: 20220810, end: 20220813
  27. METOPROLOL TARTRATE [Concomitant]
     Active Substance: METOPROLOL TARTRATE
     Indication: Arrhythmia prophylaxis
     Route: 048
     Dates: start: 20220810, end: 20220812
  28. ETHAMSYLATE [Concomitant]
     Active Substance: ETHAMSYLATE
     Indication: Haemorrhage prophylaxis
     Route: 042
     Dates: start: 20220803, end: 20220813
  29. INVERT SUGAR AND ELECTROLYTES [Concomitant]
     Indication: Fluid replacement
     Route: 042
     Dates: start: 20220809, end: 20220810
  30. AMINO ACIDS, SOURCE UNSPECIFIED [Concomitant]
     Active Substance: AMINO ACIDS, SOURCE UNSPECIFIED
     Indication: Fluid replacement
     Route: 042
     Dates: start: 20220810, end: 20220812
  31. HUMAN IMMUNOGLOBULIN G [Concomitant]
     Active Substance: HUMAN IMMUNOGLOBULIN G
     Indication: Nutritional supplementation
     Route: 042
     Dates: start: 20220810, end: 20220811
  32. OPRELVEKIN [Concomitant]
     Active Substance: OPRELVEKIN
     Indication: Platelet count decreased
     Route: 058
     Dates: start: 20220803, end: 20220809

REACTIONS (10)
  - Multiple organ dysfunction syndrome [Fatal]
  - Cerebral infarction [Not Recovered/Not Resolved]
  - Atrial fibrillation [Not Recovered/Not Resolved]
  - Chills [Recovered/Resolved]
  - Asthenia [Not Recovered/Not Resolved]
  - Dizziness [Not Recovered/Not Resolved]
  - Vomiting [Not Recovered/Not Resolved]
  - Nausea [Not Recovered/Not Resolved]
  - Headache [Not Recovered/Not Resolved]
  - Diarrhoea [Not Recovered/Not Resolved]

NARRATIVE: CASE EVENT DATE: 20220713
